FAERS Safety Report 5199554-X (Version None)
Quarter: 2006Q4

REPORT INFORMATION
  Report Type: 
  Country: None (occurrence: None)
  Receive Date: 20061229
  Receipt Date: 20061215
  Transmission Date: 20070319
  Serious: Yes (Hospitalization)
  Sender: FDA-Public Use
  Company Number: 2006S1011245

PATIENT
  Age: 7 Year
  Sex: Male
  Weight: 8.7 kg

DRUGS (1)
  1. MERCAPTAMINE BITARTRATE (MERCAPTAMINE BITARTRATE) [Suspect]
     Dosage: SEE IMAGE
     Route: 048
     Dates: start: 19980101

REACTIONS (4)
  - BLOOD AMINO ACID LEVEL ABNORMAL [None]
  - HEADACHE [None]
  - HYPERSENSITIVITY [None]
  - RENAL IMPAIRMENT [None]
